FAERS Safety Report 8889142 (Version 3)
Quarter: 2013Q1

REPORT INFORMATION
  Report Type: Spontaneous
  Country: SE (occurrence: SE)
  Receive Date: 20121106
  Receipt Date: 20130123
  Transmission Date: 20140127
  Serious: Yes (Other)
  Sender: FDA-Public Use
  Company Number: SE-UCBSA-070128

PATIENT
  Age: 45 Year
  Sex: Female

DRUGS (6)
  1. CIMZIA [Suspect]
     Indication: PSORIATIC ARTHROPATHY
     Dosage: DOSAGE REGIMEN: 800 MGM
     Route: 058
     Dates: start: 20120906, end: 20121019
  2. METOJECT [Suspect]
     Indication: PSORIATIC ARTHROPATHY
     Dates: start: 20111219, end: 20121019
  3. FOLACIN [Concomitant]
  4. OMEPRAZOL [Concomitant]
  5. RELIFEX [Concomitant]
  6. HUMIRA [Concomitant]
     Dates: start: 20120627, end: 20120823

REACTIONS (2)
  - Pulmonary embolism [Not Recovered/Not Resolved]
  - Deep vein thrombosis [Unknown]
